FAERS Safety Report 6302231-2 (Version None)
Quarter: 2009Q3

REPORT INFORMATION
  Report Type: 
  Country: None (occurrence: None)
  Receive Date: 20090810
  Receipt Date: 20090730
  Transmission Date: 20100115
  Serious: Yes (Hospitalization)
  Sender: FDA-Public Use
  Company Number: BR-BIOGENIDEC-2009BI024300

PATIENT
  Age: 25 Year
  Sex: Male

DRUGS (2)
  1. AVONEX [Suspect]
     Indication: MULTIPLE SCLEROSIS
     Route: 030
     Dates: start: 20080701
  2. LEXAPRO [Concomitant]
     Indication: ANXIETY
     Route: 048

REACTIONS (5)
  - BALANCE DISORDER [None]
  - CENTRAL NERVOUS SYSTEM LESION [None]
  - DIZZINESS [None]
  - HALLUCINATION [None]
  - INSOMNIA [None]
